FAERS Safety Report 10993006 (Version 1)
Quarter: 2015Q2

REPORT INFORMATION
  Report Type: Spontaneous
  Country: US (occurrence: US)
  Receive Date: 20150406
  Receipt Date: 20150406
  Transmission Date: 20150821
  Serious: Yes (Other)
  Sender: FDA-Public Use
  Company Number: US-MYLANLABS-2015M1010817

PATIENT

DRUGS (3)
  1. ETOPOSIDE. [Suspect]
     Active Substance: ETOPOSIDE
     Indication: SMALL CELL LUNG CANCER LIMITED STAGE
     Dosage: 100 MG/M2 ON DAYS 1-3 (CYCLE 1 OF CHEMOTHERAPY)
     Route: 065
  2. CISPLATIN. [Suspect]
     Active Substance: CISPLATIN
     Indication: SMALL CELL LUNG CANCER LIMITED STAGE
     Dosage: 75 MG/M2 ON DAY 1 (CYCLE 1 OF CHEMOTHERAPY)
     Route: 065
  3. IRINOTECAN [Concomitant]
     Active Substance: IRINOTECAN
     Indication: SMALL CELL LUNG CANCER LIMITED STAGE
     Dosage: AT 20% DOSE REDUCTION
     Route: 065

REACTIONS (2)
  - Trichophytic granuloma [Recovered/Resolved]
  - Neutropenia [Recovered/Resolved]
